FAERS Safety Report 4484482-5 (Version None)
Quarter: 2004Q3

REPORT INFORMATION
  Report Type: 
  Country: None (occurrence: None)
  Receive Date: 20040921
  Receipt Date: 20040106
  Transmission Date: 20050211
  Serious: Yes (Death)
  Sender: FDA-Public Use
  Company Number: 163-20785-04010149

PATIENT
  Age: 90 Year
  Sex: Male

DRUGS (1)
  1. THALOMID [Suspect]
     Indication: MULTIPLE MYELOMA
     Dosage: 50 MG, DAILY, ORAL
     Route: 048
     Dates: start: 20031119, end: 20040102

REACTIONS (8)
  - ANOREXIA [None]
  - CLUMSINESS [None]
  - CONFUSIONAL STATE [None]
  - DEATH [None]
  - DISEASE PROGRESSION [None]
  - DYSPNOEA [None]
  - NEUROPATHY PERIPHERAL [None]
  - VISION BLURRED [None]
